FAERS Safety Report 9346220 (Version 1)
Quarter: 2013Q2

REPORT INFORMATION
  Report Type: Spontaneous
  Country: US (occurrence: US)
  Receive Date: 20130613
  Receipt Date: 20130613
  Transmission Date: 20140414
  Serious: Yes (Disabling)
  Sender: FDA-Public Use
  Company Number: US-SANOFI-AVENTIS-2013SA048168

PATIENT
  Age: 36 Year
  Sex: Female

DRUGS (1)
  1. AUBAGIO [Suspect]
     Indication: MULTIPLE SCLEROSIS
     Route: 048
     Dates: start: 20130507

REACTIONS (9)
  - Walking disability [Unknown]
  - Dizziness [Recovered/Resolved]
  - Pyrexia [Recovered/Resolved]
  - Abdominal discomfort [Not Recovered/Not Resolved]
  - Balance disorder [Not Recovered/Not Resolved]
  - Sensation of heaviness [Not Recovered/Not Resolved]
  - Unevaluable event [Unknown]
  - Nausea [Recovered/Resolved]
  - Hypoaesthesia [Unknown]
